FAERS Safety Report 20446032 (Version 1)
Quarter: 2022Q1

REPORT INFORMATION
  Report Type: Spontaneous
  Country: US (occurrence: US)
  Receive Date: 20220208
  Receipt Date: 20220208
  Transmission Date: 20220423
  Serious: Yes (Other)
  Sender: FDA-Public Use
  Company Number: US-SUNOVION-2022SUN000340

PATIENT
  Sex: Male

DRUGS (17)
  1. APTIOM [Suspect]
     Active Substance: ESLICARBAZEPINE ACETATE
     Indication: Product used for unknown indication
     Dosage: 50 MG, BID
     Route: 048
  2. APTIOM [Suspect]
     Active Substance: ESLICARBAZEPINE ACETATE
     Dosage: 700 MG, QD
     Route: 048
  3. APTIOM [Suspect]
     Active Substance: ESLICARBAZEPINE ACETATE
     Dosage: 200 MG, QD
     Route: 048
  4. APTIOM [Suspect]
     Active Substance: ESLICARBAZEPINE ACETATE
     Dosage: 150 MG, QD (50 MG IN THE MORNING, 100 MG IN THE EVENING)
     Route: 048
     Dates: start: 2020
  5. FYCOMPA [Suspect]
     Active Substance: PERAMPANEL
     Indication: Partial seizures
     Dosage: 2 MG, QD
     Route: 048
     Dates: start: 20191122, end: 20191130
  6. FYCOMPA [Suspect]
     Active Substance: PERAMPANEL
     Dosage: 4 MG, QD
     Route: 048
     Dates: start: 20191201, end: 20191206
  7. FYCOMPA [Suspect]
     Active Substance: PERAMPANEL
     Dosage: 6 MG, QD
     Route: 048
     Dates: start: 20191207, end: 20200206
  8. FYCOMPA [Suspect]
     Active Substance: PERAMPANEL
     Dosage: 8 MG, QD
     Route: 048
     Dates: start: 20200207
  9. KEPPRA [Suspect]
     Active Substance: LEVETIRACETAM
     Indication: Seizure
     Dosage: 500 MG, BID
     Route: 048
  10. KEPPRA [Suspect]
     Active Substance: LEVETIRACETAM
     Dosage: 600 MG, QD  (100 MG IN THE MORNING, 500 MG IN THE EVENING)
  11. KEPPRA [Suspect]
     Active Substance: LEVETIRACETAM
     Dosage: 1700 MG, QD (700 MG IN THE MORNING, 1000 MG IN THE EVENING)
     Route: 048
  12. KEPPRA [Suspect]
     Active Substance: LEVETIRACETAM
     Dosage: 1000 MG, BID
     Route: 048
  13. KEPPRA [Suspect]
     Active Substance: LEVETIRACETAM
     Dosage: 175 MG, QD (100 MG IN THE MORNING, 75 MG IN THE EVENING)
     Route: 048
  14. DILANTIN [Concomitant]
     Active Substance: PHENYTOIN
     Indication: Product used for unknown indication
     Dosage: 180 MG, QD
     Route: 048
  15. DILANTIN [Concomitant]
     Active Substance: PHENYTOIN
     Dosage: 30 MG, BID
     Route: 048
  16. DILANTIN [Concomitant]
     Active Substance: PHENYTOIN
     Dosage: 30 MG, QD
     Route: 048
     Dates: end: 2020
  17. LENVIMA [Concomitant]
     Active Substance: LENVATINIB
     Dosage: 8 MG, QD
     Dates: start: 202104

REACTIONS (12)
  - Seizure [Unknown]
  - Epileptic aura [Unknown]
  - Gastrooesophageal reflux disease [Recovered/Resolved]
  - Slow speech [Unknown]
  - Balance disorder [Recovered/Resolved]
  - Fall [Recovered/Resolved]
  - Amnesia [Not Recovered/Not Resolved]
  - Insomnia [Unknown]
  - Dysarthria [Recovered/Resolved]
  - Gait disturbance [Not Recovered/Not Resolved]
  - Inappropriate schedule of product administration [Unknown]
  - Underdose [Unknown]

NARRATIVE: CASE EVENT DATE: 20190101
